FAERS Safety Report 6435219-1 (Version None)
Quarter: 2009Q4

REPORT INFORMATION
  Report Type: 
  Country: None (occurrence: None)
  Receive Date: 20091110
  Receipt Date: 20091028
  Transmission Date: 20100525
  Serious: Yes (Hospitalization, Other)
  Sender: FDA-Public Use
  Company Number: US-ELI_LILLY_AND_COMPANY-US200910007563

PATIENT
  Sex: Female

DRUGS (14)
  1. CYMBALTA [Suspect]
     Indication: DEPRESSION
     Dosage: 30 MG, DAILY (1/D)
     Dates: start: 20090301, end: 20090901
  2. CALTRATE D /00108001/ [Concomitant]
     Dosage: 600 MG, 2/D
  3. CENTRUM [Concomitant]
     Dosage: UNK, DAILY (1/D)
  4. AMITIZA [Concomitant]
     Dosage: 8 UG, 2/D
  5. PROTONIX [Concomitant]
     Dosage: 40 MG, DAILY (1/D)
  6. DIGOXIN [Concomitant]
     Dosage: 0.25 D/F, UNK
  7. PLAVIX [Concomitant]
     Dosage: 75 MG, DAILY (1/D)
  8. TOPROL-XL [Concomitant]
     Dosage: 25 MG, DAILY (1/D)
  9. SLOW-MAG [Concomitant]
     Dosage: UNK, DAILY (1/D)
  10. ZETIA [Concomitant]
     Dosage: 10 MG, DAILY (1/D)
  11. LEXAPRO [Concomitant]
     Dosage: 2.5 MG, DAILY (1/D)
  12. MELATONIN [Concomitant]
     Dosage: 1 MG, EACH EVENING
  13. NORVASC [Concomitant]
     Dosage: 2.5 MG, DAILY (1/D)
  14. DIOVAN [Concomitant]
     Dosage: UNK MG, DAILY (1/D)

REACTIONS (1)
  - BREAST CANCER [None]
